FAERS Safety Report 24021712 (Version 5)
Quarter: 2024Q3

REPORT INFORMATION
  Report Type: Spontaneous
  Country: FR (occurrence: FR)
  Receive Date: 20240627
  Receipt Date: 20240710
  Transmission Date: 20241017
  Serious: No
  Sender: ROCHE
  Company Number: FR-ROCHE-3525203

PATIENT
  Age: 89 Year
  Sex: Female

DRUGS (1)
  1. VABYSMO [Suspect]
     Active Substance: FARICIMAB\FARICIMAB-SVOA
     Indication: Age-related macular degeneration
     Dosage: EVERY MONTH 3 TIMES
     Route: 050
     Dates: start: 20231221, end: 20240229

REACTIONS (5)
  - Eye inflammation [Unknown]
  - Vitreous opacities [Unknown]
  - Retinitis [Unknown]
  - Chorioretinitis [Unknown]
  - Retinal vasculitis [Unknown]

NARRATIVE: CASE EVENT DATE: 20240307
